FAERS Safety Report 5121432-2 (Version None)
Quarter: 2006Q4

REPORT INFORMATION
  Report Type: 
  Country: None (occurrence: None)
  Receive Date: 20061002
  Receipt Date: 20060918
  Transmission Date: 20070319
  Serious: Yes (Hospitalization, Other)
  Sender: FDA-Public Use
  Company Number: US200605006279

PATIENT
  Age: 32 Year
  Sex: Female
  Weight: 97.1 kg

DRUGS (3)
  1. ZYPREXA [Suspect]
     Indication: BIPOLAR DISORDER
     Dosage: 15 MG,
     Dates: start: 20011001
  2. ABILIFY [Concomitant]
  3. LITHIUM CARBONATE [Concomitant]

REACTIONS (7)
  - BLOOD CHOLESTEROL ABNORMAL [None]
  - BLOOD TRIGLYCERIDES INCREASED [None]
  - DIABETES MELLITUS [None]
  - DIPLOPIA [None]
  - HEPATITIS VIRAL [None]
  - OBESITY [None]
  - SPLENIC RUPTURE [None]
